FAERS Safety Report 15189345 (Version 3)
Quarter: 2018Q4

REPORT INFORMATION
  Report Type: Spontaneous
  Country: JP (occurrence: JP)
  Receive Date: 20180724
  Receipt Date: 20181016
  Transmission Date: 20190204
  Serious: Yes (Hospitalization)
  Sender: FDA-Public Use
  Company Number: JP-EISAI MEDICAL RESEARCH-EC-2018-041407

PATIENT
  Age: 81 Year
  Sex: Female
  Weight: 43 kg

DRUGS (1)
  1. LENVIMA [Suspect]
     Active Substance: LENVATINIB
     Indication: HEPATOCELLULAR CARCINOMA
     Route: 048
     Dates: start: 20180528, end: 20180622

REACTIONS (5)
  - Fatigue [Unknown]
  - Pneumonia [Recovering/Resolving]
  - C-reactive protein increased [Recovering/Resolving]
  - Nasopharyngitis [Recovered/Resolved]
  - Pyrexia [Recovering/Resolving]

NARRATIVE: CASE EVENT DATE: 2018
